FAERS Safety Report 4359056-7 (Version None)
Quarter: 2004Q2

REPORT INFORMATION
  Report Type: 
  Country: None (occurrence: None)
  Receive Date: 20040517
  Receipt Date: 20030130
  Transmission Date: 20050107
  Serious: Yes (Other)
  Sender: FDA-Public Use
  Company Number: PHEH2003US01137

PATIENT
  Age: 71 Year
  Sex: Male

DRUGS (3)
  1. AREDIA [Suspect]
     Indication: MULTIPLE MYELOMA
     Dosage: UNK/UNK
  2. EPOGEN [Concomitant]
     Dosage: UNK/UNK
  3. NEUPOGEN [Concomitant]
     Dosage: UNK/UNK

REACTIONS (9)
  - INFECTION [None]
  - JAW FRACTURE [None]
  - MANDIBULECTOMY [None]
  - OPEN WOUND [None]
  - OSTEOMYELITIS [None]
  - OSTEONECROSIS [None]
  - PATHOLOGICAL FRACTURE [None]
  - RADIATION INJURY [None]
  - SURGERY [None]
